FAERS Safety Report 12796185 (Version 1)
Quarter: 2016Q3

REPORT INFORMATION
  Report Type: Spontaneous
  Country: US (occurrence: US)
  Receive Date: 20160929
  Receipt Date: 20160929
  Transmission Date: 20161109
  Serious: No
  Sender: FDA-Public Use
  Company Number: US-BAYER-2016-186427

PATIENT
  Age: 57 Year
  Sex: Female

DRUGS (1)
  1. CLIMARA [Suspect]
     Active Substance: ESTRADIOL
     Dosage: 0.1 MG, UNK
     Route: 062
     Dates: start: 201609, end: 20160921

REACTIONS (2)
  - Medication error [Recovered/Resolved]
  - Device adhesion issue [None]

NARRATIVE: CASE EVENT DATE: 2016
